FAERS Safety Report 10185696 (Version 4)
Quarter: 2014Q3

REPORT INFORMATION
  Report Type: Report from Study
  Country: US (occurrence: US)
  Receive Date: 20140521
  Receipt Date: 20140827
  Transmission Date: 20150326
  Serious: No
  Sender: FDA-Public Use
  Company Number: PHEH2014US009981

PATIENT
  Sex: Female
  Weight: 55.33 kg

DRUGS (1)
  1. TASIGNA [Suspect]
     Active Substance: NILOTINIB
     Indication: CHRONIC MYELOID LEUKAEMIA
     Dosage: 300 MG, BID (2 CAPSULES TWICE A DAY, ON EMPTY STOMACH)
     Route: 048
     Dates: start: 20140411

REACTIONS (4)
  - Rash pruritic [Unknown]
  - Rash erythematous [Unknown]
  - Alopecia [Unknown]
  - Rash generalised [Recovering/Resolving]
